FAERS Safety Report 14606994 (Version 1)
Quarter: 2018Q1

REPORT INFORMATION
  Report Type: Spontaneous
  Country: US (occurrence: US)
  Receive Date: 20180306
  Receipt Date: 20180306
  Transmission Date: 20180509
  Serious: Yes (Life-Threatening, Hospitalization, Other)
  Sender: FDA-Public Use
  Company Number: None

PATIENT
  Age: 56 Year
  Sex: Male
  Weight: 80.74 kg

DRUGS (6)
  1. ALLERGY SHOT [Concomitant]
     Active Substance: UNSPECIFIED INGREDIENT
  2. DYMISTA [Concomitant]
     Active Substance: AZELASTINE HYDROCHLORIDE\FLUTICASONE PROPIONATE
  3. ONE-A-DAY VITAMIN [Concomitant]
  4. XOLAIR [Suspect]
     Active Substance: OMALIZUMAB
     Indication: ASTHMA
     Route: 058
     Dates: start: 20141229, end: 20160427
  5. DULERA [Concomitant]
     Active Substance: FORMOTEROL FUMARATE DIHYDRATE\MOMETASONE FUROATE
  6. ATIVORSTATIN [Concomitant]

REACTIONS (1)
  - Sarcoma [None]

NARRATIVE: CASE EVENT DATE: 20160601
